FAERS Safety Report 4895793-3 (Version None)
Quarter: 2006Q1

REPORT INFORMATION
  Report Type: 
  Country: None (occurrence: None)
  Receive Date: 20060125
  Receipt Date: 20050113
  Transmission Date: 20060701
  Serious: Yes (Hospitalization)
  Sender: FDA-Public Use
  Company Number: 13267

PATIENT
  Age: 8 Year
  Sex: Male

DRUGS (4)
  1. BLEOMYCIN [Suspect]
     Indication: HODGKIN'S DISEASE
  2. ADRIAMYCIN PFS [Concomitant]
  3. DAARBAZINE [Concomitant]
  4. VINBLASTINE [Concomitant]

REACTIONS (7)
  - GENERAL PHYSICAL HEALTH DETERIORATION [None]
  - PNEUMOMEDIASTINUM [None]
  - PNEUMOPERICARDIUM [None]
  - PNEUMOTHORAX [None]
  - PULMONARY INTERSTITIAL EMPHYSEMA SYNDROME [None]
  - SUBCUTANEOUS EMPHYSEMA [None]
  - SWELLING FACE [None]
